FAERS Safety Report 9348213 (Version 1)
Quarter: 2013Q2

REPORT INFORMATION
  Report Type: Spontaneous
  Country: US (occurrence: None)
  Receive Date: 20130612
  Receipt Date: 20130612
  Transmission Date: 20140414
  Serious: No
  Sender: FDA-Public Use
  Company Number: None

PATIENT
  Age: 63 Year
  Sex: Female

DRUGS (8)
  1. CIMZIA [Suspect]
     Indication: CROHN^S DISEASE
     Dosage: ONCE A MONTH
     Route: 058
     Dates: start: 20130413
  2. PREDNISONE [Concomitant]
  3. LOMOTIL [Concomitant]
  4. VICODIN [Concomitant]
  5. CEPHALEXIN [Concomitant]
  6. IRON [Concomitant]
  7. CLONAZEPAM [Concomitant]
  8. CALCIUM + D [Concomitant]

REACTIONS (2)
  - Anxiety [None]
  - Restless legs syndrome [None]
